FAERS Safety Report 5929301-2 (Version None)
Quarter: 2008Q4

REPORT INFORMATION
  Report Type: 
  Country: None (occurrence: None)
  Receive Date: 20081023
  Receipt Date: 20081023
  Transmission Date: 20090506
  Serious: Yes (Hospitalization)
  Sender: FDA-Public Use
  Company Number: None

PATIENT
  Age: 27 Year
  Sex: Female
  Weight: 113.3993 kg

DRUGS (4)
  1. QVAR 40 [Suspect]
     Indication: ASTHMA
     Dosage: 2 PUFFS 2 TIMES DAILY INHAL
     Route: 055
     Dates: start: 20070926, end: 20080928
  2. QVAR 40 [Suspect]
     Indication: ASTHMA
     Dosage: 2 PUFFS 2 TIMES DAILY INHAL
     Route: 055
     Dates: start: 20081006, end: 20081014
  3. COMBIVENT [Concomitant]
  4. ADVIR [Concomitant]

REACTIONS (3)
  - DRUG HYPERSENSITIVITY [None]
  - HEAD INJURY [None]
  - LOSS OF CONSCIOUSNESS [None]
